FAERS Safety Report 4276698-8 (Version None)
Quarter: 2004Q1

REPORT INFORMATION
  Report Type: 
  Country: None (occurrence: None)
  Receive Date: 20040120
  Receipt Date: 20040112
  Transmission Date: 20041129
  Serious: Yes (Other)
  Sender: FDA-Public Use
  Company Number: US-JNJFOC-20040102342

PATIENT
  Sex: Female

DRUGS (2)
  1. HALDOL [Suspect]
     Indication: PSYCHOTIC DISORDER
     Dosage: 50 MG, 1 IN 1 DAY, INTRAVENOUS
     Route: 042
  2. VALIUM [Concomitant]

REACTIONS (1)
  - DISORIENTATION [None]
